FAERS Safety Report 23910363 (Version 1)
Quarter: 2024Q2

REPORT INFORMATION
  Report Type: Spontaneous
  Country: US (occurrence: None)
  Receive Date: 20240525
  Receipt Date: 20240525
  Transmission Date: 20240716
  Serious: Yes (Hospitalization)
  Sender: FDA-Public Use
  Company Number: None

PATIENT
  Age: 55 Year
  Sex: Female

DRUGS (13)
  1. ENBREL [Suspect]
     Active Substance: BENZYL ALCOHOL\ETANERCEPT
     Indication: Rheumatoid arthritis
     Dosage: OTHER QUANTITY : INJECT 1 PEN;?FREQUENCY : WEEKLY;?
     Route: 058
     Dates: start: 20170913
  2. ENBREL [Suspect]
     Active Substance: BENZYL ALCOHOL\ETANERCEPT
     Indication: Rheumatoid factor negative
  3. ENBREL [Suspect]
     Active Substance: BENZYL ALCOHOL\ETANERCEPT
     Indication: Polyarthritis
  4. AZATHIOPRINE [Concomitant]
     Active Substance: AZATHIOPRINE
  5. BENZONATATE [Concomitant]
     Active Substance: BENZONATATE
  6. ENBRELSRCLK [Concomitant]
  7. FLUCONAZOLE [Concomitant]
     Active Substance: FLUCONAZOLE
  8. HYDROXYCHLOROQUINE [Concomitant]
     Active Substance: HYDROXYCHLOROQUINE
  9. MELOXICAM [Concomitant]
     Active Substance: MELOXICAM
  10. PANTOPRAZOLE [Concomitant]
     Active Substance: PANTOPRAZOLE
  11. PFIZER VACC INJ [Concomitant]
  12. PREDNISOLONE ACETATE [Concomitant]
     Active Substance: PREDNISOLONE ACETATE
  13. SUPREP BOWEL SOL PREP KIT [Concomitant]

REACTIONS (7)
  - Drug ineffective [None]
  - Pain [None]
  - Infection [None]
  - Influenza [None]
  - Pneumonia [None]
  - Therapy interrupted [None]
  - Illness [None]

NARRATIVE: CASE EVENT DATE: 20240312
